FAERS Safety Report 7555667-6 (Version None)
Quarter: 2011Q2

REPORT INFORMATION
  Report Type: 
  Country: None (occurrence: None)
  Receive Date: 20110617
  Receipt Date: 20080711
  Transmission Date: 20111010
  Serious: Yes (Hospitalization)
  Sender: FDA-Public Use
  Company Number: PHHY2008DE37532

PATIENT
  Age: 48 Year
  Sex: Female
  Weight: 96 kg

DRUGS (5)
  1. SANDOSTATIN LAR [Suspect]
     Indication: NEUROENDOCRINE TUMOUR
     Dosage: 30 MG, UNK
     Route: 030
     Dates: start: 20070601
  2. INNOHEP 20,000  ANTI-XA [Concomitant]
     Indication: HAEMODILUTION
  3. SELENASE [Concomitant]
     Dosage: 300 UNK, QD
  4. APLONA [Concomitant]
  5. UNIZINK [Concomitant]
     Dosage: 50 UNK, QD

REACTIONS (3)
  - VENOUS THROMBOSIS [None]
  - HEADACHE [None]
  - DIARRHOEA [None]
